FAERS Safety Report 6074310-9 (Version None)
Quarter: 2009Q1

REPORT INFORMATION
  Report Type: 
  Country: None (occurrence: None)
  Receive Date: 20090211
  Receipt Date: 20090205
  Transmission Date: 20090719
  Serious: Yes (Other)
  Sender: FDA-Public Use
  Company Number: CZ-ROXANE LABORATORIES, INC.-2009-RO-00123RO

PATIENT
  Age: 30 Year
  Sex: Male

DRUGS (9)
  1. CYCLOPHOSPHAMIDE [Suspect]
     Indication: LUPUS NEPHRITIS
     Route: 042
  2. CYCLOPHOSPHAMIDE [Suspect]
     Indication: SYSTEMIC LUPUS ERYTHEMATOSUS
     Dosage: 600MG
  3. METHYLPREDNISOLONE 4MG TAB [Suspect]
     Indication: LUPUS NEPHRITIS
  4. METHYLPREDNISOLONE 4MG TAB [Suspect]
     Indication: SYSTEMIC LUPUS ERYTHEMATOSUS
  5. MESNA [Suspect]
  6. LANSOPRAZOLE [Suspect]
  7. NIMESULIDE [Suspect]
  8. METHYLPREDNISOLONE 4MG TAB [Concomitant]
     Route: 048
  9. TOPICAL LOTIONS [Concomitant]
     Indication: SYSTEMIC LUPUS ERYTHEMATOSUS
     Route: 061

REACTIONS (1)
  - SYSTEMIC LUPUS ERYTHEMATOSUS [None]
